FAERS Safety Report 13449168 (Version 1)
Quarter: 2017Q2

REPORT INFORMATION
  Report Type: Spontaneous
  Country: US (occurrence: US)
  Receive Date: 20170417
  Receipt Date: 20170417
  Transmission Date: 20170830
  Serious: No
  Sender: FDA-Public Use
  Company Number: US-MANNKIND CORPORATION-2017MK000010

PATIENT
  Sex: Male
  Weight: 74.91 kg

DRUGS (5)
  1. AFREZZA [Suspect]
     Active Substance: INSULIN HUMAN
     Dates: start: 20161215
  2. METFORMIN [Concomitant]
     Active Substance: METFORMIN HYDROCHLORIDE
     Indication: TYPE 2 DIABETES MELLITUS
  3. AFREZZA [Suspect]
     Active Substance: INSULIN HUMAN
     Dates: start: 20161215
  4. VICTOZA [Concomitant]
     Active Substance: LIRAGLUTIDE
     Indication: TYPE 2 DIABETES MELLITUS
  5. AFREZZA [Suspect]
     Active Substance: INSULIN HUMAN
     Indication: TYPE 2 DIABETES MELLITUS
     Dates: start: 20161215

REACTIONS (5)
  - Choking sensation [Unknown]
  - Product physical issue [Unknown]
  - Expired product administered [Unknown]
  - Blood glucose increased [Unknown]
  - Drug ineffective [Unknown]
